FAERS Safety Report 8972359 (Version 1)
Quarter: 2012Q4

REPORT INFORMATION
  Report Type: 
  Country: US (occurrence: US)
  Receive Date: 20121218
  Receipt Date: 20121218
  Transmission Date: 20130627
  Serious: Yes (Death, Hospitalization)
  Sender: FDA-Public Use
  Company Number: PHHY2012US115169

PATIENT
  Age: 79 Year
  Sex: Male

DRUGS (6)
  1. CLOPIDOGREL [Suspect]
     Indication: ATRIAL FIBRILLATION
     Dosage: 75 mg, daily
  2. CLOPIDOGREL [Suspect]
     Indication: CORONARY ARTERY DISEASE
  3. ACETYLSALICYLIC ACID [Suspect]
     Indication: ATRIAL FIBRILLATION
     Dosage: 81 mg, daily
  4. ACETYLSALICYLIC ACID [Suspect]
     Indication: CORONARY ARTERY DISEASE
  5. DABIGATRAN [Suspect]
     Indication: ATRIAL FIBRILLATION
     Dosage: 150 mg, BID
  6. DABIGATRAN [Suspect]
     Indication: CORONARY ARTERY DISEASE

REACTIONS (6)
  - Cardiac arrest [Fatal]
  - Pulseless electrical activity [Fatal]
  - Chest pain [Fatal]
  - Haemorrhage [Unknown]
  - Melaena [Unknown]
  - Epistaxis [Unknown]
